FAERS Safety Report 6907828-4 (Version None)
Quarter: 2010Q3

REPORT INFORMATION
  Report Type: 
  Country: None (occurrence: None)
  Receive Date: 20100805
  Receipt Date: 20100728
  Transmission Date: 20110219
  Serious: Yes (Hospitalization, Other)
  Sender: FDA-Public Use
  Company Number: JP-SANOFI-AVENTIS-2010SA044235

PATIENT
  Age: 69 Year
  Sex: Male

DRUGS (14)
  1. ELPLAT [Suspect]
     Route: 042
     Dates: start: 20081027, end: 20081027
  2. ELPLAT [Suspect]
     Route: 042
     Dates: start: 20090313, end: 20090313
  3. AVASTIN [Suspect]
     Route: 041
     Dates: start: 20081027, end: 20081027
  4. AVASTIN [Suspect]
     Route: 041
     Dates: start: 20100324, end: 20100324
  5. FLUOROURACIL [Concomitant]
     Dates: start: 20081027, end: 20081027
  6. FLUOROURACIL [Concomitant]
     Dates: start: 20100301, end: 20100301
  7. CALCIUM LEVOFOLINATE [Concomitant]
     Dates: start: 20081027, end: 20081027
  8. CALCIUM LEVOFOLINATE [Concomitant]
     Dates: start: 20100324, end: 20100324
  9. IRINOTECAN HCL [Concomitant]
     Dates: start: 20091203, end: 20091203
  10. IRINOTECAN HCL [Concomitant]
     Dates: start: 20100324, end: 20100324
  11. DIOVANE [Concomitant]
     Dates: start: 20070723
  12. AMLODIPINE BESYLATE [Concomitant]
     Dates: start: 20070723
  13. LASIX [Concomitant]
     Dates: start: 20081111
  14. ALLOPURINOL [Concomitant]
     Dates: start: 20081111

REACTIONS (3)
  - INCISIONAL HERNIA [None]
  - NEUROPATHY PERIPHERAL [None]
  - WOUND DEHISCENCE [None]
